FAERS Safety Report 4486555-X (Version None)
Quarter: 2004Q4

REPORT INFORMATION
  Report Type: 
  Country: None (occurrence: None)
  Receive Date: 20041026
  Receipt Date: 20041026
  Transmission Date: 20050328
  Serious: Yes (Hospitalization)
  Sender: FDA-Public Use
  Company Number: None

PATIENT
  Age: 47 Year
  Sex: Female
  Weight: 69.4003 kg

DRUGS (8)
  1. DOCETAXEL 75 MG/M2 [Suspect]
     Indication: BREAST CANCER
     Dosage: 127 MG IV OVER OVER 1 HR 2 WKS
     Route: 042
     Dates: start: 20041011
  2. DOCETAXEL 75 MG/M2 [Suspect]
     Indication: BREAST CANCER
     Dosage: 127 MG IV OVER OVER 1 HR 2 WKS
     Route: 042
     Dates: start: 20041025
  3. DOXEPIN HCL [Concomitant]
  4. COMPAZINE [Concomitant]
  5. VITAMIN E [Concomitant]
  6. VITAMIN B6 [Concomitant]
  7. CELEBREX [Concomitant]
  8. LORTAB [Concomitant]

REACTIONS (8)
  - BLOOD PRESSURE DECREASED [None]
  - BLOOD PRESSURE DIASTOLIC INCREASED [None]
  - CHEST PAIN [None]
  - FEELING HOT [None]
  - FLUSHING [None]
  - HEART RATE DECREASED [None]
  - LOSS OF CONSCIOUSNESS [None]
  - VOMITING [None]
